FAERS Safety Report 11634440 (Version 2)
Quarter: 2015Q4

REPORT INFORMATION
  Report Type: Report from Study
  Country: PA (occurrence: PA)
  Receive Date: 20151015
  Receipt Date: 20151028
  Transmission Date: 20160304
  Serious: Yes (Hospitalization, Other)
  Sender: FDA-Public Use
  Company Number: PHHY2015PA030585

PATIENT
  Age: 9 Year
  Sex: Female
  Weight: 24.2 kg

DRUGS (3)
  1. EPAMIN [Concomitant]
     Active Substance: PHENYTOIN SODIUM
     Indication: PRODUCT USED FOR UNKNOWN INDICATION
     Dosage: 150 MG, Q12H
     Route: 048
     Dates: start: 201409
  2. HIDROXIUREA [Concomitant]
     Active Substance: HYDROXYUREA
     Indication: PRODUCT USED FOR UNKNOWN INDICATION
     Dosage: 1 DF, QD
     Route: 048
     Dates: start: 2012
  3. EXJADE [Suspect]
     Active Substance: DEFERASIROX
     Indication: SICKLE CELL ANAEMIA
     Dosage: 1 DF, QD
     Route: 048
     Dates: start: 2012

REACTIONS (5)
  - Wrong technique in product usage process [Unknown]
  - Seizure [Unknown]
  - Serum ferritin increased [Unknown]
  - Hemiplegia [Unknown]
  - Haemoglobin decreased [Recovering/Resolving]

NARRATIVE: CASE EVENT DATE: 2012
